FAERS Safety Report 4309382-2 (Version None)
Quarter: 2004Q1

REPORT INFORMATION
  Report Type: 
  Country: None (occurrence: None)
  Receive Date: 20040302
  Receipt Date: 20040213
  Transmission Date: 20041129
  Serious: Yes (Other)
  Sender: FDA-Public Use
  Company Number: US-ROCHE-359900

PATIENT
  Age: 53 Year
  Sex: Female
  Weight: 42.6 kg

DRUGS (19)
  1. INTERFERON ALFA-2A [Suspect]
     Route: 058
     Dates: start: 20010108, end: 20010402
  2. INTERFERON ALFA-2A [Suspect]
     Route: 058
     Dates: start: 20010402
  3. RIBAVIRIN [Suspect]
     Route: 048
     Dates: start: 20010108
  4. RIBAVIRIN [Suspect]
     Dosage: 400MG QAM AND 600MG QPM.
     Route: 048
  5. AMITRIPTYLINE HCL [Concomitant]
     Dosage: TAKEN AT BEDTIME.
     Route: 048
     Dates: start: 20010115
  6. VIOKASE [Concomitant]
     Route: 048
     Dates: start: 19980515
  7. MESALAMINE [Concomitant]
     Route: 048
     Dates: start: 19991015
  8. CALTRATE [Concomitant]
     Route: 048
     Dates: start: 19980315
  9. ACYCLOVIR [Concomitant]
     Route: 048
     Dates: start: 19980815
  10. MULTI-VITAMIN [Concomitant]
     Route: 048
     Dates: start: 19930615
  11. FOLIC ACID [Concomitant]
     Dates: start: 19930615
  12. ALBUTEROL [Concomitant]
     Dates: start: 19980315
  13. EFAVIRENZ [Concomitant]
     Dosage: RE-STARTED ON 12 JUN 2001 AT 600MG QHS.
     Route: 048
     Dates: start: 19991015, end: 20010309
  14. D4T [Concomitant]
     Route: 048
     Dates: start: 19991015, end: 20010309
  15. 3TC [Concomitant]
     Route: 048
     Dates: start: 19991015, end: 20010309
  16. INDINAVIR [Concomitant]
     Route: 048
  17. KALETRA [Concomitant]
     Route: 048
  18. SERZONE [Concomitant]
     Dosage: TAKEN QHS.
     Route: 048
     Dates: start: 19990415
  19. NEURONTIN [Concomitant]
     Route: 048
     Dates: start: 19981115

REACTIONS (2)
  - BLOOD LACTIC ACID INCREASED [None]
  - LUNG SQUAMOUS CELL CARCINOMA STAGE UNSPECIFIED [None]
